FAERS Safety Report 6171089-7 (Version None)
Quarter: 2009Q2

REPORT INFORMATION
  Report Type: 
  Country: None (occurrence: None)
  Receive Date: 20090429
  Receipt Date: 20090420
  Transmission Date: 20091009
  Serious: Yes (Other)
  Sender: FDA-Public Use
  Company Number: PHHY2009BR15131

PATIENT
  Sex: Male
  Weight: 145 kg

DRUGS (7)
  1. FORASEQ [Suspect]
     Indication: EMPHYSEMA
     Dosage: UNK
     Dates: start: 20030101
  2. VERAPAMIL HYDROCHLORIDE [Concomitant]
     Indication: ARRHYTHMIA
     Dosage: THREE TO FOUR TABLETS DAILY
     Route: 048
  3. MAREVAN [Concomitant]
     Indication: ANTICOAGULANT THERAPY
     Dosage: UNK
  4. ATROVENT [Concomitant]
     Indication: EMPHYSEMA
     Dosage: UNK
  5. ATROVENT [Concomitant]
     Indication: DYSPNOEA
  6. FLUTICASONE PROPIONATE [Concomitant]
     Indication: EMPHYSEMA
     Dosage: UNK
  7. FLUTICASONE PROPIONATE [Concomitant]
     Indication: DYSPNOEA

REACTIONS (2)
  - OBESITY [None]
  - SURGERY [None]
